FAERS Safety Report 7864564-8 (Version None)
Quarter: 2011Q4

REPORT INFORMATION
  Report Type: 
  Country: None (occurrence: None)
  Receive Date: 20111028
  Receipt Date: 20111024
  Transmission Date: 20120403
  Serious: No
  Sender: FDA-Public Use
  Company Number: US-PFIZER INC-2011258379

PATIENT
  Sex: Female

DRUGS (2)
  1. PROTONIX [Suspect]
     Indication: GASTROOESOPHAGEAL REFLUX DISEASE
     Dosage: 40 MG, 2X/DAY
  2. PROTONIX [Suspect]
     Dosage: UNK
     Dates: start: 20110801

REACTIONS (6)
  - CONSTIPATION [None]
  - PAIN [None]
  - ASTHENIA [None]
  - FEELING COLD [None]
  - DIARRHOEA [None]
  - TREMOR [None]
